FAERS Safety Report 9402624 (Version 1)
Quarter: 2013Q3

REPORT INFORMATION
  Report Type: Spontaneous
  Country: IT (occurrence: IT)
  Receive Date: 20130716
  Receipt Date: 20130716
  Transmission Date: 20140515
  Serious: Yes (Death)
  Sender: FDA-Public Use
  Company Number: IT-ASTELLAS-2013EU005916

PATIENT
  Sex: 0

DRUGS (2)
  1. MICAFUNGIN [Suspect]
     Dosage: UNK
     Route: 065
  2. COLIMYCIN                          /00013203/ [Concomitant]
     Dosage: UNK
     Route: 065

REACTIONS (2)
  - Toxic epidermal necrolysis [Fatal]
  - Multi-organ failure [Fatal]
